FAERS Safety Report 11132028 (Version 1)
Quarter: 2015Q2

REPORT INFORMATION
  Report Type: Spontaneous
  Country: US (occurrence: US)
  Receive Date: 20150522
  Receipt Date: 20150522
  Transmission Date: 20150821
  Serious: No
  Sender: FDA-Public Use
  Company Number: US-TARO-2014TAR00462

PATIENT
  Age: 51 Year
  Sex: Male
  Weight: 97.51 kg

DRUGS (4)
  1. CARBAMAZEPINE ER [Suspect]
     Active Substance: CARBAMAZEPINE
     Indication: TRIGEMINAL NEURALGIA
     Dosage: 1200 MG, 1X/DAY
     Dates: start: 201410
  2. BACLOFEN. [Concomitant]
     Active Substance: BACLOFEN
     Dosage: 120 MG, 3X/DAY
  3. BACLOFEN. [Concomitant]
     Active Substance: BACLOFEN
     Dosage: UNK
  4. CARBAMAZEPINE ER [Suspect]
     Active Substance: CARBAMAZEPINE
     Indication: TRIGEMINAL NEURALGIA
     Dosage: 200 MG, 2X/DAY
     Route: 048
     Dates: start: 201408, end: 201410

REACTIONS (2)
  - Drug ineffective [Not Recovered/Not Resolved]
  - Product quality issue [Not Recovered/Not Resolved]

NARRATIVE: CASE EVENT DATE: 201410
